FAERS Safety Report 23416075 (Version 1)
Quarter: 2024Q1

REPORT INFORMATION
  Report Type: Spontaneous
  Country: US (occurrence: US)
  Receive Date: 20240118
  Receipt Date: 20240118
  Transmission Date: 20240410
  Serious: Yes (Hospitalization)
  Sender: FDA-Public Use
  Company Number: US-MYLANLABS-2024M1004915

PATIENT
  Age: 74 Year
  Sex: Female

DRUGS (7)
  1. LIDOCAINE [Suspect]
     Active Substance: LIDOCAINE
     Indication: Lumbar radiculopathy
     Dosage: UNK, 2 ML OF 1%
     Route: 008
  2. LIDOCAINE [Suspect]
     Active Substance: LIDOCAINE
     Dosage: UNK , RECHALLENGE WAS DONE
     Route: 008
  3. IOHEXOL [Suspect]
     Active Substance: IOHEXOL
     Indication: Scan with contrast
     Dosage: 1 MILLILITER
     Route: 008
  4. IOHEXOL [Suspect]
     Active Substance: IOHEXOL
     Dosage: UNK , RECHALLENGE WAS DONE
     Route: 008
  5. DEPO-MEDROL [Suspect]
     Active Substance: METHYLPREDNISOLONE ACETATE
     Indication: Lumbar radiculopathy
     Dosage: 80 MILLIGRAM (2ML OF 40?MG/ML)
     Route: 008
  6. DEPO-MEDROL [Suspect]
     Active Substance: METHYLPREDNISOLONE ACETATE
     Dosage: UNK , RECHALLENGE WAS DONE
     Route: 008
  7. SODIUM CHLORIDE [Concomitant]
     Active Substance: SODIUM CHLORIDE
     Indication: Vehicle solution use
     Dosage: 2 MILLILITER
     Route: 008

REACTIONS (2)
  - Meningitis aseptic [Recovered/Resolved]
  - Medication error [Recovered/Resolved]
